FAERS Safety Report 10231958 (Version 1)
Quarter: 2014Q2

REPORT INFORMATION
  Report Type: Spontaneous
  Country: US (occurrence: US)
  Receive Date: 20140612
  Receipt Date: 20140612
  Transmission Date: 20141212
  Serious: No
  Sender: FDA-Public Use
  Company Number: US-009507513-1406USA002761

PATIENT
  Sex: Male

DRUGS (2)
  1. JANUVIA [Suspect]
     Indication: DIABETES MELLITUS
     Dosage: 100 MG /ONCE DAILY
     Route: 048
  2. METFORMIN [Concomitant]
     Dosage: UNK

REACTIONS (3)
  - Renal impairment [Unknown]
  - Blood glucose decreased [Unknown]
  - Incorrect dose administered [Unknown]
